FAERS Safety Report 8048516-3 (Version None)
Quarter: 2012Q1

REPORT INFORMATION
  Report Type: 
  Country: None (occurrence: None)
  Receive Date: 20120117
  Receipt Date: 20120114
  Transmission Date: 20120608
  Serious: No
  Sender: FDA-Public Use
  Company Number: US-PFIZER INC-2012011086

PATIENT
  Sex: Female
  Weight: 106 kg

DRUGS (2)
  1. MULTI-VITAMINS [Concomitant]
     Dosage: UNK
  2. ZOLOFT [Suspect]
     Indication: DEPRESSION
     Dosage: 100 MG, 3X/DAY
     Route: 048
     Dates: start: 19990101, end: 20020101

REACTIONS (2)
  - DYSGEUSIA [None]
  - TRISMUS [None]
